FAERS Safety Report 21309637 (Version 2)
Quarter: 2022Q3

REPORT INFORMATION
  Report Type: Spontaneous
  Country: US (occurrence: US)
  Receive Date: 20220908
  Receipt Date: 20220909
  Transmission Date: 20221027
  Serious: Yes (Hospitalization, Other)
  Sender: FDA-Public Use
  Company Number: US-SANOFI-01262580

PATIENT
  Age: 41 Year
  Sex: Female

DRUGS (2)
  1. DUPIXENT [Suspect]
     Active Substance: DUPILUMAB
     Indication: Dermatitis atopic
     Dosage: 300 MG
  2. COVID-19 VACCINE NOS [Suspect]
     Active Substance: COVID-19 VACCINE NOS

REACTIONS (8)
  - Hypotension [Unknown]
  - Pyrexia [Unknown]
  - Peripheral swelling [Unknown]
  - Sepsis [Unknown]
  - Anaphylactic reaction [Unknown]
  - Pharyngeal swelling [Unknown]
  - Pruritus [Unknown]
  - Infection [Unknown]
